FAERS Safety Report 25906757 (Version 1)
Quarter: 2025Q4

REPORT INFORMATION
  Report Type: Report from Study
  Country: US (occurrence: US)
  Receive Date: 20251010
  Receipt Date: 20251010
  Transmission Date: 20260119
  Serious: Yes (Other)
  Sender: ABBVIE
  Company Number: US-ABBVIE-6494131

PATIENT
  Age: 20 Year
  Sex: Male

DRUGS (1)
  1. RINVOQ [Suspect]
     Active Substance: UPADACITINIB
     Indication: Product used for unknown indication
     Route: 048
     Dates: start: 202412

REACTIONS (8)
  - Lip and/or oral cavity cancer [Recovering/Resolving]
  - Eye inflammation [Unknown]
  - Swelling [Recovering/Resolving]
  - Pain [Recovering/Resolving]
  - Feeding disorder [Unknown]
  - Stomatitis [Unknown]
  - Rash [Recovering/Resolving]
  - Wound secretion [Unknown]

NARRATIVE: CASE EVENT DATE: 20250101
